FAERS Safety Report 5956385-8 (Version None)
Quarter: 2008Q4

REPORT INFORMATION
  Report Type: 
  Country: None (occurrence: None)
  Receive Date: 20081118
  Receipt Date: 20081110
  Transmission Date: 20090506
  Serious: Yes (Hospitalization)
  Sender: FDA-Public Use
  Company Number: US-AMGEN-KDL317741

PATIENT
  Sex: Male

DRUGS (1)
  1. ENBREL [Suspect]
     Indication: RHEUMATOID ARTHRITIS
     Route: 058
     Dates: start: 20030101

REACTIONS (8)
  - ARTHRALGIA [None]
  - COUGH [None]
  - FALL [None]
  - OROPHARYNGEAL PAIN [None]
  - PYREXIA [None]
  - SINUSITIS [None]
  - SUBDURAL HAEMATOMA [None]
  - UPPER RESPIRATORY TRACT INFECTION [None]
